FAERS Safety Report 10028990 (Version 1)
Quarter: 2014Q1

REPORT INFORMATION
  Report Type: Spontaneous
  Country: TR (occurrence: TR)
  Receive Date: 20140321
  Receipt Date: 20140321
  Transmission Date: 20141002
  Serious: Yes (Other)
  Sender: FDA-Public Use
  Company Number: PHHY2014TR034364

PATIENT
  Age: 10 Year
  Sex: Female

DRUGS (3)
  1. CICLOSPORIN [Suspect]
     Indication: IMMUNOSUPPRESSION
  2. TACROLIMUS [Suspect]
     Indication: IMMUNOSUPPRESSION
  3. SIROLIMUS [Suspect]
     Indication: IMMUNOSUPPRESSION

REACTIONS (6)
  - Transplant rejection [Unknown]
  - Diabetes mellitus [Unknown]
  - Renal failure chronic [Unknown]
  - Renal impairment [Unknown]
  - Lupus nephritis [Unknown]
  - Hyperlipidaemia [Unknown]
